FAERS Safety Report 4489606-1 (Version None)
Quarter: 2004Q4

REPORT INFORMATION
  Report Type: 
  Country: None (occurrence: None)
  Receive Date: 20041101
  Receipt Date: 20041021
  Transmission Date: 20050328
  Serious: Yes (Other)
  Sender: FDA-Public Use
  Company Number: PHEH2004US11450

PATIENT
  Age: 35 Year
  Sex: Female
  Weight: 50 kg

DRUGS (3)
  1. DIOVAN [Suspect]
     Dosage: NO TREATMENT, PATERNAL VIA SEMEN
  2. SIMVASTATIN [Concomitant]
     Dosage: NO TREATMENT, PATERNAL VIA SEMEN
  3. ATENOLOL W/CHLORTALIDONE [Concomitant]
     Dosage: NO TREATMENT, PATERNAL VIA SEMEN

REACTIONS (2)
  - ABORTION SPONTANEOUS [None]
  - DRUG EXPOSURE DURING PREGNANCY [None]
